FAERS Safety Report 25761485 (Version 1)
Quarter: 2025Q3

REPORT INFORMATION
  Report Type: Spontaneous
  Country: US (occurrence: US)
  Receive Date: 20250904
  Receipt Date: 20250904
  Transmission Date: 20251021
  Serious: No
  Sender: MEDEXUS PHARMA
  Company Number: US-MEDEXUS PHARMA, INC.-2025MED00015

PATIENT
  Age: 88 Year
  Sex: Male
  Weight: 95.254 kg

DRUGS (14)
  1. RASUVO [Suspect]
     Active Substance: METHOTREXATE SODIUM
     Indication: Arthritis
     Dosage: 25 MG, 1X/WEEK ON MONDAYS TO UPPER THIGH
     Dates: start: 2023
  2. UNSPECIFIED INGREDIENT [Suspect]
     Active Substance: UNSPECIFIED INGREDIENT
     Indication: Hypertension
     Dates: end: 20250127
  3. UNSPECIFIED INGREDIENT [Suspect]
     Active Substance: UNSPECIFIED INGREDIENT
     Dates: start: 20250128
  4. LISINOPRIL [Concomitant]
     Active Substance: LISINOPRIL
  5. AMLODIPINE [Concomitant]
     Active Substance: AMLODIPINE BESYLATE
  6. FOLIC ACID [Concomitant]
     Active Substance: FOLIC ACID
  7. JANUVIA [Concomitant]
     Active Substance: SITAGLIPTIN PHOSPHATE
  8. MYRBETRIQ [Concomitant]
     Active Substance: MIRABEGRON
  9. METFORMIN [Concomitant]
     Active Substance: METFORMIN HYDROCHLORIDE
  10. TAMSULOSIN [Concomitant]
     Active Substance: TAMSULOSIN
  11. ROSUVASTATIN [Concomitant]
     Active Substance: ROSUVASTATIN
  12. TESTOSTERONE [Concomitant]
     Active Substance: TESTOSTERONE
     Dosage: UNK, 1X/WEEK
  13. VITAMINS [Concomitant]
     Active Substance: VITAMINS
  14. GABAPENTIN [Concomitant]
     Active Substance: GABAPENTIN

REACTIONS (6)
  - Exposure via skin contact [Recovered/Resolved]
  - Injection site mass [Recovered/Resolved]
  - Hypotension [Unknown]
  - Incorrect dose administered [Recovered/Resolved]
  - Device failure [Recovered/Resolved]
  - Device mechanical issue [Recovered/Resolved]

NARRATIVE: CASE EVENT DATE: 20250127
